FAERS Safety Report 8710684 (Version 3)
Quarter: 2012Q4

REPORT INFORMATION
  Report Type: Spontaneous
  Country: FR (occurrence: None)
  Receive Date: 20120723
  Receipt Date: 20120823
  Transmission Date: 20130627
  Serious: Yes (Other)
  Sender: FDA-Public Use
  Company Number: 2012-3114

PATIENT
  Age: 50 Year
  Sex: Male

DRUGS (3)
  1. DYSPORT [Suspect]
     Indication: LEG SPASTICITY
     Dosage: 1000 UNITS (1000 UNITS, SINGLE CYCLE), INTRAMUSCULAR
     Route: 030
     Dates: start: 20120423, end: 20120531
  2. DYSPORT [Suspect]
     Dosage: 1000 UNITS (1000 UNITS, SINGLE CYCLE), INTRAMUSCULAR
     Route: 030
     Dates: start: 20120423, end: 20120531
  3. BACLOFEN [Suspect]
     Indication: MUSCLE SPASTICITY
     Dosage: 134 UG (134 UG, 1 IN 1 D), INTRATHECAL, 96 UG (96 UG, 1 IN 1 D), INTRATHECAL;
     Route: 037
     Dates: start: 20120423, end: 20120531

REACTIONS (3)
  - Hypotonia [None]
  - Dysstasia [None]
  - Asthenia [None]
